FAERS Safety Report 20181586 (Version 1)
Quarter: 2021Q4

REPORT INFORMATION
  Report Type: Spontaneous
  Country: US (occurrence: US)
  Receive Date: 20211214
  Receipt Date: 20211214
  Transmission Date: 20220303
  Serious: Yes (Other)
  Sender: FDA-Public Use
  Company Number: US-ELI_LILLY_AND_COMPANY-US202112005183

PATIENT
  Sex: Male

DRUGS (5)
  1. LYUMJEV KWIKPEN [Suspect]
     Active Substance: INSULIN LISPRO
     Indication: Type 2 diabetes mellitus
     Dosage: 45 U, UNKNOWN(SLIDING SCALE)
     Route: 058
  2. LYUMJEV KWIKPEN [Suspect]
     Active Substance: INSULIN LISPRO
     Indication: Type 2 diabetes mellitus
     Dosage: 45 U, UNKNOWN(SLIDING SCALE)
     Route: 058
  3. LYUMJEV KWIKPEN [Suspect]
     Active Substance: INSULIN LISPRO
     Dosage: 45 U, UNKNOWN(SLIDING SCALE)
     Route: 058
  4. LYUMJEV KWIKPEN [Suspect]
     Active Substance: INSULIN LISPRO
     Dosage: 45 U, UNKNOWN(SLIDING SCALE)
     Route: 058
  5. LANTUS [Concomitant]
     Active Substance: INSULIN GLARGINE
     Indication: Type 2 diabetes mellitus
     Dosage: 60 U, BID

REACTIONS (2)
  - Neuropathic arthropathy [Recovering/Resolving]
  - Gait disturbance [Recovering/Resolving]
